FAERS Safety Report 8465216-6 (Version None)
Quarter: 2012Q2

REPORT INFORMATION
  Report Type: 
  Country: None (occurrence: None)
  Receive Date: 20120626
  Receipt Date: 20120620
  Transmission Date: 20120825
  Serious: Yes (Other)
  Sender: FDA-Public Use
  Company Number: PHHY2012DE053636

PATIENT
  Sex: Female

DRUGS (3)
  1. ZOLEDRONOC ACID [Suspect]
     Dosage: 5 MG SOLUTION FOR INFUSION ONCE YEARLY
     Route: 042
  2. ZOLEDRONOC ACID [Suspect]
     Dosage: 5 MG SOLUTION FOR INFUSION ONCE YEARLY
     Route: 042
  3. ZOLEDRONOC ACID [Suspect]
     Dosage: 5 MG SOLUTION FOR INFUSION ONCE YEARLY
     Route: 042

REACTIONS (5)
  - TOOTH LOSS [None]
  - PAIN IN EXTREMITY [None]
  - ATROPHY [None]
  - PAIN IN JAW [None]
  - MUSCULOSKELETAL PAIN [None]
